FAERS Safety Report 7972603-9 (Version None)
Quarter: 2011Q4

REPORT INFORMATION
  Report Type: 
  Country: None (occurrence: None)
  Receive Date: 20111213
  Receipt Date: 20111202
  Transmission Date: 20120403
  Serious: Yes (Hospitalization, Other)
  Sender: FDA-Public Use
  Company Number: DE-JNJFOC-20110912201

PATIENT
  Sex: Male
  Weight: 85 kg

DRUGS (10)
  1. STELARA [Suspect]
     Route: 058
     Dates: start: 20110906, end: 20110906
  2. ATORVASTATIN [Concomitant]
     Route: 065
  3. MONO MACK [Concomitant]
     Route: 065
  4. TAMSULOSIN HCL [Concomitant]
     Route: 065
  5. STELARA [Suspect]
     Indication: PSORIASIS
     Route: 058
     Dates: start: 20110509, end: 20110509
  6. STELARA [Suspect]
     Route: 058
     Dates: start: 20110606, end: 20110606
  7. ANTIARRHYTHMIC [Concomitant]
     Indication: ARRHYTHMIA
     Route: 065
  8. AMLODIPINE BESYLATE AND OLMESARTAN MEDOXOMIL [Concomitant]
     Route: 065
  9. MARCUMAR [Concomitant]
     Route: 065
  10. CONCOR [Concomitant]
     Route: 065

REACTIONS (4)
  - TRANSIENT ISCHAEMIC ATTACK [None]
  - APHASIA [None]
  - HEADACHE [None]
  - HYPERTENSIVE CRISIS [None]
